FAERS Safety Report 12615250 (Version 1)
Quarter: 2016Q3

REPORT INFORMATION
  Report Type: Spontaneous
  Country: JP (occurrence: JP)
  Receive Date: 20160802
  Receipt Date: 20160802
  Transmission Date: 20161109
  Serious: Yes (Other)
  Sender: FDA-Public Use
  Company Number: JP-MYLANLABS-2016M1031544

PATIENT

DRUGS (2)
  1. PACLITAXEL ALBUMIN [Suspect]
     Active Substance: PACLITAXEL
     Indication: PANCREATIC CARCINOMA
     Dosage: 100 MG/M2; ON 1ST DAY OF RADIOTHERAPY THEREAFTER WEEKLY
     Route: 042
  2. GEMCITABINE [Suspect]
     Active Substance: GEMCITABINE\GEMCITABINE HYDROCHLORIDE
     Indication: PANCREATIC CARCINOMA
     Dosage: 1000 MG/M2; ON 1ST DAY OF RADIOTHERAPY THEREAFTER WEEKLY
     Route: 042

REACTIONS (3)
  - Duodenitis haemorrhagic [Unknown]
  - Decreased appetite [Unknown]
  - Enteritis [Unknown]
